FAERS Safety Report 7360328-2 (Version None)
Quarter: 2011Q1

REPORT INFORMATION
  Report Type: 
  Country: None (occurrence: None)
  Receive Date: 20110318
  Receipt Date: 20100817
  Transmission Date: 20110831
  Serious: Yes (Other)
  Sender: FDA-Public Use
  Company Number: US-BAYER-201018233NA

PATIENT
  Sex: Female
  Weight: 86 kg

DRUGS (6)
  1. NSAID'S [Concomitant]
     Dosage: UNK
     Dates: start: 20080301
  2. VACCINES [Concomitant]
  3. NSAID'S [Concomitant]
     Dosage: UNK
     Dates: start: 20080212
  4. VICODIN [Concomitant]
  5. YAZ [Suspect]
     Indication: CONTRACEPTION
     Dosage: UNK
     Route: 048
     Dates: start: 20070701, end: 20090701
  6. YASMIN [Suspect]
     Indication: PRODUCT USED FOR UNKNOWN INDICATION
     Route: 048
     Dates: start: 20070101

REACTIONS (6)
  - BILIARY COLIC [None]
  - DYSPEPSIA [None]
  - GALLBLADDER CHOLESTEROLOSIS [None]
  - GALLBLADDER INJURY [None]
  - CHOLECYSTITIS CHRONIC [None]
  - GASTROINTESTINAL DISORDER [None]
